FAERS Safety Report 23148867 (Version 2)
Quarter: 2023Q4

REPORT INFORMATION
  Report Type: Spontaneous
  Country: US (occurrence: US)
  Receive Date: 20231106
  Receipt Date: 20231213
  Transmission Date: 20240109
  Serious: Yes (Other)
  Sender: FDA-Public Use
  Company Number: US-BAYER-2023A154315

PATIENT
  Age: 40 Year
  Sex: Male

DRUGS (1)
  1. KOVALTRY [Suspect]
     Active Substance: ANTIHEMOPHILIC FACTOR, HUMAN RECOMBINANT
     Indication: Haemorrhage
     Dosage: 1 DF; INFUSE 3000 UNITS +/- 10%

REACTIONS (3)
  - Arthralgia [None]
  - Mobility decreased [None]
  - Muscle strain [None]

NARRATIVE: CASE EVENT DATE: 20231026
